FAERS Safety Report 6504488-1 (Version None)
Quarter: 2009Q4

REPORT INFORMATION
  Report Type: 
  Country: None (occurrence: None)
  Receive Date: 20091217
  Receipt Date: 20091204
  Transmission Date: 20100525
  Serious: Yes (Hospitalization)
  Sender: FDA-Public Use
  Company Number: IT-GENENTECH-295653

PATIENT
  Sex: Female

DRUGS (9)
  1. RITUXIMAB [Suspect]
     Indication: B-CELL LYMPHOMA
     Dosage: 375 MG/M2, UNK
     Route: 042
     Dates: start: 20090123, end: 20090123
  2. RITUXIMAB [Suspect]
     Dosage: 375 MG/M2, UNK
     Route: 042
     Dates: start: 20090313, end: 20090827
  3. ENDOXAN [Suspect]
     Indication: B-CELL LYMPHOMA
     Dosage: 750 MG/M2, UNK
     Route: 042
     Dates: start: 20090116, end: 20090123
  4. ENDOXAN [Suspect]
     Dosage: 400 MG/M2, UNK
     Route: 042
     Dates: start: 20090313, end: 20090827
  5. DOXORUBICIN HCL [Suspect]
     Indication: B-CELL LYMPHOMA
     Dosage: 50 MG/M2, UNK
     Route: 065
     Dates: start: 20090116, end: 20090123
  6. EPIRUBICIN [Suspect]
     Indication: B-CELL LYMPHOMA
     Dosage: 35 MG/M2, UNK
     Route: 065
     Dates: start: 20090313, end: 20090827
  7. VINCRISTINE [Suspect]
     Indication: B-CELL LYMPHOMA
     Dosage: 1.4 MG/M2, UNK
     Route: 042
     Dates: start: 20090116, end: 20090123
  8. PREDNISONE [Suspect]
     Indication: B-CELL LYMPHOMA
     Dosage: 100 MG, UNK
     Route: 048
     Dates: start: 20090116, end: 20090123
  9. PREDNISONE [Suspect]
     Dosage: 75 MG, UNK
     Route: 048
     Dates: start: 20090313, end: 20090827

REACTIONS (4)
  - BRONCHOPNEUMONIA [None]
  - ILEUS PARALYTIC [None]
  - INTERSTITIAL LUNG DISEASE [None]
  - NEUTROPENIA [None]
